FAERS Safety Report 15408508 (Version 2)
Quarter: 2018Q4

REPORT INFORMATION
  Report Type: Spontaneous
  Country: FR (occurrence: FR)
  Receive Date: 20180920
  Receipt Date: 20181108
  Transmission Date: 20190204
  Serious: Yes (Other)
  Sender: FDA-Public Use
  Company Number: FR-AMGEN-FRASP2018128574

PATIENT
  Age: 81 Year
  Sex: Female
  Weight: 53 kg

DRUGS (2)
  1. SINEMET [Concomitant]
     Active Substance: CARBIDOPA\LEVODOPA
     Indication: PARKINSON^S DISEASE
     Dosage: UNK
  2. PROLIA [Suspect]
     Active Substance: DENOSUMAB
     Indication: OSTEOPOROSIS
     Dosage: UNK UNK, Q6MO
     Route: 058
     Dates: start: 201404, end: 201804

REACTIONS (3)
  - Atypical femur fracture [Not Recovered/Not Resolved]
  - Parkinson^s disease [Unknown]
  - Bone density abnormal [Not Recovered/Not Resolved]

NARRATIVE: CASE EVENT DATE: 20180827
